FAERS Safety Report 23546786 (Version 1)
Quarter: 2024Q1

REPORT INFORMATION
  Report Type: Spontaneous
  Country: FR (occurrence: FR)
  Receive Date: 20240221
  Receipt Date: 20240221
  Transmission Date: 20240410
  Serious: Yes (Hospitalization)
  Sender: FDA-Public Use
  Company Number: None

PATIENT
  Age: 43 Year
  Sex: Female
  Weight: 70 kg

DRUGS (1)
  1. IMODIUM [Suspect]
     Active Substance: LOPERAMIDE HYDROCHLORIDE
     Indication: Diarrhoea
     Dosage: 1 INTAKE
     Route: 048
     Dates: start: 20231006, end: 20231006

REACTIONS (2)
  - Hepatic cytolysis [Recovering/Resolving]
  - Sphincter of Oddi dysfunction [Recovering/Resolving]

NARRATIVE: CASE EVENT DATE: 20231007
